FAERS Safety Report 17452913 (Version 3)
Quarter: 2020Q3

REPORT INFORMATION
  Report Type: Spontaneous
  Country: JP (occurrence: JP)
  Receive Date: 20200224
  Receipt Date: 20200702
  Transmission Date: 20201102
  Serious: Yes (Life-Threatening, Hospitalization, Other)
  Sender: FDA-Public Use
  Company Number: JP-SHIRE-JP202006579

PATIENT

DRUGS (14)
  1. INTUNIV [Suspect]
     Active Substance: GUANFACINE HYDROCHLORIDE
     Indication: ATTENTION DEFICIT HYPERACTIVITY DISORDER
     Dosage: 1 MILLIGRAM, 1X/DAY:QD
     Route: 048
     Dates: start: 20200118
  2. INTUNIV [Suspect]
     Active Substance: GUANFACINE HYDROCHLORIDE
     Dosage: 2 MILLIGRAM, 1X/DAY:QD
     Route: 048
     Dates: start: 20200125
  3. ATOMOXETINE HYDROCHLORIDE. [Concomitant]
     Active Substance: ATOMOXETINE HYDROCHLORIDE
     Indication: PRODUCT USED FOR UNKNOWN INDICATION
  4. REXULTI [Concomitant]
     Active Substance: BREXPIPRAZOLE
     Indication: SCHIZOPHRENIA
     Dosage: 2 GRAM
     Route: 048
     Dates: start: 20200125
  5. LANDSEN [Concomitant]
     Active Substance: CLONAZEPAM
     Indication: SEDATION
     Dosage: 2 GRAM
     Route: 048
     Dates: start: 201912
  6. SYCREST [Concomitant]
     Active Substance: ASENAPINE MALEATE
     Indication: URINARY INCONTINENCE
  7. LULLAN [Concomitant]
     Active Substance: PEROSPIRONE HYDROCHLORIDE
     Indication: AGITATION
  8. REXULTI [Concomitant]
     Active Substance: BREXPIPRAZOLE
     Dosage: 2 GRAM, 1X/DAY:QD
     Route: 048
     Dates: start: 201912
  9. LANDSEN [Concomitant]
     Active Substance: CLONAZEPAM
     Indication: AFFECTIVE DISORDER
     Dosage: 0.5 MILLIGRAM, 1X/DAY:QD
     Route: 048
  10. LULLAN [Concomitant]
     Active Substance: PEROSPIRONE HYDROCHLORIDE
     Indication: INSOMNIA
  11. ORENGEDOKUTO [Concomitant]
     Active Substance: HERBALS
     Indication: INSOMNIA
  12. ZYLORIC [Concomitant]
     Active Substance: ALLOPURINOL
     Indication: HYPERURICAEMIA
  13. LANDSEN [Concomitant]
     Active Substance: CLONAZEPAM
     Indication: SCHIZOPHRENIA
  14. ZYPREXA [Concomitant]
     Active Substance: OLANZAPINE
     Indication: SEDATION COMPLICATION

REACTIONS (3)
  - Suicide attempt [Unknown]
  - Pelvic fracture [Unknown]
  - Acetabulum fracture [Unknown]

NARRATIVE: CASE EVENT DATE: 20200203
